FAERS Safety Report 4717270-2 (Version None)
Quarter: 2005Q3

REPORT INFORMATION
  Report Type: 
  Country: None (occurrence: None)
  Receive Date: 20050715
  Receipt Date: 20050707
  Transmission Date: 20060218
  Serious: Yes (Life-Threatening)
  Sender: FDA-Public Use
  Company Number: 2005-07-0184

PATIENT
  Age: 34 Year
  Sex: Male
  Weight: 89 kg

DRUGS (1)
  1. LORATADINE [Suspect]
     Indication: SEASONAL ALLERGY
     Dosage: 10 MG QD  ORAL
     Route: 048
     Dates: start: 20050614, end: 20050618

REACTIONS (1)
  - ATRIAL FIBRILLATION [None]
